FAERS Safety Report 25907117 (Version 1)
Quarter: 2025Q4

REPORT INFORMATION
  Report Type: Spontaneous
  Country: US (occurrence: US)
  Receive Date: 20251010
  Receipt Date: 20251010
  Transmission Date: 20260119
  Serious: Yes (Hospitalization, Other)
  Sender: NOVO NORDISK
  Company Number: US-NOVOPROD-1514174

PATIENT
  Age: 54 Year
  Sex: Female

DRUGS (3)
  1. OZEMPIC [Suspect]
     Active Substance: SEMAGLUTIDE
     Indication: Type 2 diabetes mellitus
     Dosage: 0.25 MG
     Route: 058
  2. OZEMPIC [Suspect]
     Active Substance: SEMAGLUTIDE
     Dosage: 1 MG
     Route: 058
     Dates: start: 20250813, end: 20250817
  3. OZEMPIC [Suspect]
     Active Substance: SEMAGLUTIDE
     Indication: Weight control
     Dosage: 0.5 MG
     Route: 058

REACTIONS (10)
  - Seizure [Not Recovered/Not Resolved]
  - Dehydration [Not Recovered/Not Resolved]
  - Vomiting [Recovered/Resolved]
  - Thirst [Not Recovered/Not Resolved]
  - Asthenia [Not Recovered/Not Resolved]
  - Injection site bruising [Recovered/Resolved]
  - Injection site erythema [Recovered/Resolved]
  - Injection site pain [Recovered/Resolved]
  - Wrong technique in product usage process [Unknown]
  - Inappropriate schedule of product administration [Unknown]
